FAERS Safety Report 4360702-2 (Version None)
Quarter: 2004Q2

REPORT INFORMATION
  Report Type: 
  Country: None (occurrence: None)
  Receive Date: 20040519
  Receipt Date: 20040519
  Transmission Date: 20050107
  Serious: Yes (Other)
  Sender: FDA-Public Use
  Company Number: None

PATIENT
  Age: 64 Year
  Sex: Female
  Weight: 66 kg

DRUGS (1)
  1. MAGNEVIST [Suspect]
     Indication: DIAGNOSTIC PROCEDURE
     Dosage: 13 ML IV X 1
     Route: 042
     Dates: start: 20031022

REACTIONS (6)
  - DYSPHONIA [None]
  - EAR DISORDER [None]
  - FEELING ABNORMAL [None]
  - LARYNGOSPASM [None]
  - SNEEZING [None]
  - THROAT TIGHTNESS [None]
